FAERS Safety Report 9655510 (Version 2)
Quarter: 2013Q4

REPORT INFORMATION
  Report Type: Spontaneous
  Country: US (occurrence: US)
  Receive Date: 20131029
  Receipt Date: 20131029
  Transmission Date: 20140711
  Serious: No
  Sender: FDA-Public Use
  Company Number: US-PURDUE-USA-2012-0089746

PATIENT
  Age: 49 Year
  Sex: Male
  Weight: 99.77 kg

DRUGS (2)
  1. OXYCONTIN (NDA 22-272) [Suspect]
     Indication: PAIN
     Dosage: 80 MG, AM AND PM
  2. OXYCODONE HCL IR CAPSULES [Concomitant]
     Indication: PRODUCT USED FOR UNKNOWN INDICATION
     Dosage: 10 MG, UNK

REACTIONS (5)
  - Drug withdrawal syndrome [Unknown]
  - Pain [Recovered/Resolved]
  - Malaise [Unknown]
  - Tremor [Unknown]
  - Nausea [Unknown]
